FAERS Safety Report 5518514-X (Version None)
Quarter: 2007Q4

REPORT INFORMATION
  Report Type: 
  Country: None (occurrence: None)
  Receive Date: 20071115
  Receipt Date: 20071025
  Transmission Date: 20080405
  Serious: No
  Sender: FDA-Public Use
  Company Number: ES-AVENTIS-200720088GDDC

PATIENT
  Age: 34 Year
  Sex: Female

DRUGS (2)
  1. ARAVA [Suspect]
     Route: 048
     Dates: start: 20060201, end: 20070201
  2. DACORTIN [Concomitant]
     Route: 048
     Dates: start: 20040501

REACTIONS (1)
  - DRUG EXPOSURE DURING PREGNANCY [None]
